FAERS Safety Report 8548483-X (Version None)
Quarter: 2012Q3

REPORT INFORMATION
  Report Type: 
  Country: None (occurrence: None)
  Receive Date: 20120730
  Receipt Date: 20120724
  Transmission Date: 20120928
  Serious: Yes (Death, Hospitalization, Other)
  Sender: FDA-Public Use
  Company Number: JP-JNJFOC-20120712669

PATIENT
  Age: 63 Year
  Sex: Male

DRUGS (11)
  1. DOXORUBICIN HYDROCHLORIDE [Suspect]
     Indication: DIFFUSE LARGE B-CELL LYMPHOMA
     Dosage: FOR 4 CONSECUTIVE DAYS
     Route: 042
  2. PREDNISOLONE [Suspect]
     Dosage: AT THE TIME OF ADMISSION
     Route: 065
  3. CYCLOPHOSPHAMIDE [Suspect]
     Indication: B-CELL LYMPHOMA
     Dosage: FOR 5 DAYS
     Route: 065
  4. VASOPRESSOR UNSP [Concomitant]
     Indication: LIFE SUPPORT
     Route: 065
  5. PREDNISOLONE [Suspect]
     Indication: B-CELL LYMPHOMA
     Dosage: FOR 14 DAYS
     Route: 065
  6. ETOPOSIDE [Suspect]
     Indication: DIFFUSE LARGE B-CELL LYMPHOMA
     Dosage: FOR 4 CONSECUTIVE DAYS
     Route: 065
  7. AMLODIPINE [Concomitant]
     Indication: HYPERTENSION
     Route: 065
  8. ATENOLOL [Concomitant]
     Indication: HYPERTENSION
     Route: 065
  9. VINCRISTINE [Suspect]
     Indication: DIFFUSE LARGE B-CELL LYMPHOMA
     Dosage: FOR 4 CONSECUTIVE DAYS
     Route: 065
  10. RITUXIMAB [Suspect]
     Indication: DIFFUSE LARGE B-CELL LYMPHOMA
     Dosage: FOR 6 DAYS
     Route: 065
  11. ANTIMYCOBACTERIALS [Concomitant]
     Indication: LIFE SUPPORT
     Dosage: TAZOBACTAM/PIPERACILLIN (2.25 G EVERY 8 HOURS) + CIPROFLOXCIN (200 MG EVERY 12 HOURS)
     Route: 065

REACTIONS (2)
  - RESPIRATORY FAILURE [None]
  - ZYGOMYCOSIS [None]
